FAERS Safety Report 5162072-9 (Version None)
Quarter: 2006Q4

REPORT INFORMATION
  Report Type: 
  Country: None (occurrence: None)
  Receive Date: 20061121
  Receipt Date: 20061103
  Transmission Date: 20070319
  Serious: Yes (Hospitalization)
  Sender: FDA-Public Use
  Company Number: 2006RR-04429

PATIENT
  Age: 90 Year
  Sex: Male

DRUGS (5)
  1. FLUOXETINE [Suspect]
     Indication: DEPRESSION
     Dosage: 20 MG, QD, ORAL
     Route: 048
     Dates: end: 20060501
  2. ALLOPURINOL [Concomitant]
  3. ASPIRIN [Concomitant]
  4. SIMVASTATIN [Concomitant]
  5. SODIUM CLODRONATE [Concomitant]

REACTIONS (3)
  - DELIRIUM [None]
  - HYPONATRAEMIA [None]
  - SYNCOPE [None]
